FAERS Safety Report 13349107 (Version 1)
Quarter: 2017Q1

REPORT INFORMATION
  Report Type: Spontaneous
  Country: AU (occurrence: AU)
  Receive Date: 20170320
  Receipt Date: 20170320
  Transmission Date: 20170428
  Serious: Yes (Other)
  Sender: FDA-Public Use
  Company Number: AU-APOTEX-2017AP008238

PATIENT
  Age: 35 Year
  Sex: Female

DRUGS (6)
  1. APO-OXYCODONE MR [Suspect]
     Active Substance: OXYCODONE
     Indication: BACK PAIN
     Dosage: (IMMEDIATE-RELEASE), 5 MG, TID
     Route: 065
  2. APO-OXYCODONE MR [Suspect]
     Active Substance: OXYCODONE
     Indication: NECK PAIN
     Dosage: UNK
     Route: 048
  3. PARACETAMOL CODEINE [Suspect]
     Active Substance: ACETAMINOPHEN\CODEINE PHOSPHATE
     Indication: PAIN
     Dosage: (500 MG/30 MG) 2 DF, TID
     Route: 065
  4. HEROIN [Suspect]
     Active Substance: DIACETYLMORPHINE
     Indication: PAIN
     Route: 065
  5. APO-OXYCODONE MR [Suspect]
     Active Substance: OXYCODONE
     Dosage: (SLOW-RELEASE), 20 MG, BID
     Route: 065
  6. FENTANYL. [Suspect]
     Active Substance: FENTANYL
     Indication: PAIN
     Dosage: UNK, UP TO 30 TIMES A DAY
     Route: 051

REACTIONS (6)
  - Road traffic accident [Unknown]
  - Suicidal ideation [Unknown]
  - Intentional product misuse [Unknown]
  - Dizziness [Unknown]
  - Sedation [Unknown]
  - Drug dependence [Unknown]
